FAERS Safety Report 9196102 (Version 1)
Quarter: 2013Q1

REPORT INFORMATION
  Report Type: Spontaneous
  Country: US (occurrence: None)
  Receive Date: 20120705
  Receipt Date: 20120705
  Transmission Date: 20140127
  Serious: Yes (Hospitalization)
  Sender: FDA-Public Use
  Company Number: US-CYPR-2012-000014

PATIENT
  Age: 57 Year
  Sex: Female
  Weight: 56.7 kg

DRUGS (8)
  1. CLOPIDOGREL [Suspect]
     Indication: ANTIPLATELET THERAPY
     Route: 048
     Dates: start: 20110210, end: 20120305
  2. ASPIRIN [Suspect]
     Indication: CARDIOVASCULAR DISORDER
     Route: 048
     Dates: start: 20110209, end: 20120305
  3. PRILOSEC [Concomitant]
  4. ATENOLOL [Concomitant]
  5. LORATADINE [Concomitant]
  6. ROSUVASTATIN [Concomitant]
  7. NITROGLYCERIN [Concomitant]
  8. CYPHER STENT [Concomitant]

REACTIONS (1)
  - Angina unstable [None]
